FAERS Safety Report 7703593-1 (Version None)
Quarter: 2011Q3

REPORT INFORMATION
  Report Type: 
  Country: None (occurrence: None)
  Receive Date: 20110823
  Receipt Date: 20110811
  Transmission Date: 20111222
  Serious: Yes (Hospitalization)
  Sender: FDA-Public Use
  Company Number: IL-SANOFI-AVENTIS-2011SA048185

PATIENT
  Age: 69 Year
  Sex: Male
  Weight: 85 kg

DRUGS (8)
  1. COUMADIN [Concomitant]
     Route: 065
  2. JANUVIA [Concomitant]
     Route: 048
  3. DRONEDARONE HCL [Suspect]
     Indication: ATRIAL FIBRILLATION
     Route: 048
     Dates: start: 20110411, end: 20110707
  4. SIMAVASTATIN [Concomitant]
     Route: 048
  5. ZOLPIDEM [Concomitant]
     Route: 048
  6. CITALOPRAM HYDROBROMIDE [Concomitant]
     Route: 048
     Dates: start: 20110425
  7. MICROPIRIN [Concomitant]
     Route: 048
  8. BISOPROLOL FUMARATE [Concomitant]
     Route: 048

REACTIONS (1)
  - ISCHAEMIC STROKE [None]
